FAERS Safety Report 7126823-6 (Version None)
Quarter: 2010Q4

REPORT INFORMATION
  Report Type: 
  Country: None (occurrence: None)
  Receive Date: 20101129
  Receipt Date: 20091125
  Transmission Date: 20110411
  Serious: No
  Sender: FDA-Public Use
  Company Number: US-PFIZER INC-2009304363

PATIENT
  Sex: Male
  Weight: 70.3 kg

DRUGS (1)
  1. VIAGRA [Suspect]
     Indication: SEXUAL DYSFUNCTION
     Dosage: 50 MG, SINGLE
     Route: 048
     Dates: start: 20091125

REACTIONS (2)
  - ANORGASMIA [None]
  - ERECTION INCREASED [None]
